FAERS Safety Report 18237451 (Version 2)
Quarter: 2020Q4

REPORT INFORMATION
  Report Type: Spontaneous
  Country: ES (occurrence: ES)
  Receive Date: 20200907
  Receipt Date: 20201021
  Transmission Date: 20210113
  Serious: Yes (Hospitalization)
  Sender: FDA-Public Use
  Company Number: ES-TEVA-2020-ES-1824892

PATIENT
  Age: 60 Year
  Sex: Female

DRUGS (4)
  1. LOPINAVIR-RITONAVIR [Suspect]
     Active Substance: LOPINAVIR\RITONAVIR
     Indication: COVID-19
     Route: 065
  2. ETOPOSIDE. [Suspect]
     Active Substance: ETOPOSIDE
     Indication: COVID-19
     Dosage: ADMINISTERED TOTAL 2 DOSES
     Route: 065
  3. METHYLPREDNISOLONE. [Suspect]
     Active Substance: METHYLPREDNISOLONE
     Indication: COVID-19
     Route: 065
  4. ENOXAPARIN [Concomitant]
     Active Substance: ENOXAPARIN
     Indication: PROPHYLAXIS
     Dosage: 40 MILLIGRAM DAILY;
     Route: 065

REACTIONS (4)
  - Off label use [Unknown]
  - Toxicity to various agents [Unknown]
  - Enterococcal infection [Unknown]
  - Leukopenia [Unknown]
